FAERS Safety Report 15928912 (Version 1)
Quarter: 2019Q1

REPORT INFORMATION
  Report Type: Spontaneous
  Country: JP (occurrence: JP)
  Receive Date: 20190206
  Receipt Date: 20190206
  Transmission Date: 20190417
  Serious: Yes (Death)
  Sender: FDA-Public Use
  Company Number: JP-PFIZER INC-2018524629

PATIENT
  Age: 66 Year
  Sex: Male
  Weight: 47.3 kg

DRUGS (8)
  1. LASIX [Concomitant]
     Active Substance: FUROSEMIDE
     Dosage: 10 MG, 1X/DAY
     Route: 048
     Dates: end: 20181216
  2. LYRICA [Suspect]
     Active Substance: PREGABALIN
     Dosage: 125 MG, 2X/DAY
     Route: 048
     Dates: end: 20181216
  3. FENTOS [Suspect]
     Active Substance: FENTANYL
     Dosage: 3 MG, 1X/DAY
     Route: 062
     Dates: end: 20181216
  4. MAGMITT [Concomitant]
     Active Substance: MAGNESIUM OXIDE
     Dosage: 250 MG, 3X/DAY
     Route: 048
     Dates: end: 20181216
  5. VYNDAQEL [Suspect]
     Active Substance: TAFAMIDIS MEGLUMINE
     Indication: HEREDITARY NEUROPATHIC AMYLOIDOSIS
     Dosage: 20 MG, 1X/DAY
     Route: 048
     Dates: start: 20131218, end: 20181216
  6. ALDACTONE A [Concomitant]
     Active Substance: SPIRONOLACTONE
     Dosage: 12.5 MG, 1X/DAY
     Route: 048
     Dates: end: 20181216
  7. PARIET [Concomitant]
     Active Substance: RABEPRAZOLE SODIUM
     Dosage: 10 MG, 1X/DAY
     Route: 048
     Dates: end: 20181216
  8. BIOFERMIN [BACILLUS SUBTILIS;ENTEROCOCCUS FAECALIS;LACTOMIN] [Concomitant]
     Dosage: 1 G, 3X/DAY
     Route: 048
     Dates: end: 20181216

REACTIONS (3)
  - Cardiac amyloidosis [Fatal]
  - Cardiac failure [Fatal]
  - Sudden death [Fatal]

NARRATIVE: CASE EVENT DATE: 20181216
